FAERS Safety Report 9627934 (Version 2)
Quarter: 2014Q1

REPORT INFORMATION
  Report Type: Spontaneous
  Country: US (occurrence: US)
  Receive Date: 20131016
  Receipt Date: 20140207
  Transmission Date: 20141002
  Serious: No
  Sender: FDA-Public Use
  Company Number: US-009507513-1310USA001673

PATIENT
  Sex: Female
  Weight: 108.84 kg

DRUGS (3)
  1. IMPLANON [Suspect]
     Indication: CONTRACEPTION
     Dosage: UNK
     Route: 059
     Dates: start: 20100830
  2. FLEXERIL [Concomitant]
  3. MOBIC [Concomitant]

REACTIONS (3)
  - Device deployment issue [Unknown]
  - Medical device complication [Unknown]
  - Drug dose omission [Unknown]
